FAERS Safety Report 17501245 (Version 1)
Quarter: 2020Q1

REPORT INFORMATION
  Report Type: Spontaneous
  Country: US (occurrence: US)
  Receive Date: 20200304
  Receipt Date: 20200304
  Transmission Date: 20200409
  Serious: Yes (Life-Threatening, Hospitalization)
  Sender: FDA-Public Use
  Company Number: None

PATIENT
  Age: 42 Year
  Sex: Female
  Weight: 55.8 kg

DRUGS (1)
  1. EMGALITY [Suspect]
     Active Substance: GALCANEZUMAB-GNLM
     Indication: MIGRAINE
     Dosage: ?          OTHER FREQUENCY:MONTHLY;?
     Route: 058
     Dates: start: 20190501, end: 20191201

REACTIONS (10)
  - Vomiting [None]
  - Tri-iodothyronine decreased [None]
  - Thyrotoxic crisis [None]
  - Pneumonia [None]
  - Urticaria [None]
  - Blood thyroid stimulating hormone decreased [None]
  - Palpitations [None]
  - Stevens-Johnson syndrome [None]
  - Acute pulmonary oedema [None]
  - Basedow^s disease [None]

NARRATIVE: CASE EVENT DATE: 20191214
